FAERS Safety Report 9945540 (Version 1)
Quarter: 2014Q1

REPORT INFORMATION
  Report Type: Report from Study
  Country: US (occurrence: US)
  Receive Date: 20140303
  Receipt Date: 20140303
  Transmission Date: 20141002
  Serious: No
  Sender: FDA-Public Use
  Company Number: US-ABBVIE-13P-163-1049162-00

PATIENT
  Age: 35 Year
  Sex: Female
  Weight: 68.1 kg

DRUGS (3)
  1. HUMIRA [Suspect]
     Indication: PSORIATIC ARTHROPATHY
     Dosage: LOADING DOSE
     Dates: start: 20130211, end: 20130211
  2. HUMIRA [Suspect]
  3. UNKNOWN BLOOD PRESSURE MEDICATION [Concomitant]
     Indication: PRODUCT USED FOR UNKNOWN INDICATION

REACTIONS (3)
  - Medication error [Recovered/Resolved]
  - Wrong technique in drug usage process [Recovered/Resolved]
  - Abdominal discomfort [Recovered/Resolved]
